FAERS Safety Report 18684064 (Version 1)
Quarter: 2020Q4

REPORT INFORMATION
  Report Type: Spontaneous
  Country: CN (occurrence: CN)
  Receive Date: 20201230
  Receipt Date: 20201230
  Transmission Date: 20210114
  Serious: Yes (Disabling)
  Sender: FDA-Public Use
  Company Number: CN-009507513-2012CHN012543

PATIENT
  Age: 92 Year
  Sex: Male

DRUGS (2)
  1. SINGULAIR [Suspect]
     Active Substance: MONTELUKAST SODIUM
     Indication: TRACHEAL DILATATION
  2. SINGULAIR [Suspect]
     Active Substance: MONTELUKAST SODIUM
     Indication: ANTIINFLAMMATORY THERAPY
     Dosage: 10 MILLIGRAM, QD (ALSO REPORTED AS ONCE EVERY NIGHT (QN))
     Dates: start: 20201002, end: 20201208

REACTIONS (3)
  - Hepatobiliary disease [Recovering/Resolving]
  - Product use in unapproved indication [Unknown]
  - Incorrect route of product administration [Unknown]

NARRATIVE: CASE EVENT DATE: 20201002
